FAERS Safety Report 24275420 (Version 1)
Quarter: 2024Q3

REPORT INFORMATION
  Report Type: Spontaneous
  Country: US (occurrence: US)
  Receive Date: 20240903
  Receipt Date: 20240903
  Transmission Date: 20241017
  Serious: No
  Sender: CHATTEM
  Company Number: US-OPELLA-2024OHG029960

PATIENT
  Age: 50 Year
  Sex: Female

DRUGS (3)
  1. DIPHENHYDRAMINE [Suspect]
     Active Substance: DIPHENHYDRAMINE
     Indication: Mast cell activation syndrome
  2. RANITIDINE [Suspect]
     Active Substance: RANITIDINE
     Indication: Mast cell activation syndrome
  3. CETIRIZINE [Concomitant]
     Active Substance: CETIRIZINE HYDROCHLORIDE
     Indication: Mast cell activation syndrome

REACTIONS (2)
  - Product use in unapproved indication [Unknown]
  - No adverse event [Unknown]
